FAERS Safety Report 18555050 (Version 3)
Quarter: 2021Q4

REPORT INFORMATION
  Report Type: Spontaneous
  Country: US (occurrence: US)
  Receive Date: 20201127
  Receipt Date: 20211001
  Transmission Date: 20220303
  Serious: Yes (Hospitalization, Other)
  Sender: FDA-Public Use
  Company Number: US-TEVA-2020-US-1852468

PATIENT
  Age: 70 Year
  Sex: Male
  Weight: 117.02 kg

DRUGS (15)
  1. HYDROCHLOROTHIAZIDE\VALSARTAN [Suspect]
     Active Substance: HYDROCHLOROTHIAZIDE\VALSARTAN
     Indication: Hypertension
     Dosage: VALSARTAN 160 MG/HYDROCHLOROTHIAZIDE 12.5 MG
     Route: 065
     Dates: start: 20121124, end: 20131224
  2. HYDROCHLOROTHIAZIDE\VALSARTAN [Suspect]
     Active Substance: HYDROCHLOROTHIAZIDE\VALSARTAN
     Dosage: VALSARTAN 160 MG/HYDROCHLOROTHIAZIDE 12.5 MG
     Route: 065
     Dates: start: 20131002, end: 20131231
  3. HYDROCHLOROTHIAZIDE\VALSARTAN [Suspect]
     Active Substance: HYDROCHLOROTHIAZIDE\VALSARTAN
     Dosage: VALSARTAN 160 MG/HYDROCHLOROTHIAZIDE 12.5 MG
     Route: 065
     Dates: start: 20140331, end: 20150113
  4. DIOVAN HCT [Suspect]
     Active Substance: HYDROCHLOROTHIAZIDE\VALSARTAN
     Indication: Hypertension
     Dosage: VALSARTAN 160 MG/HYDROCHLOROTHIAZIDE 12.5 MG, DIOVAN HCT NOVARTIS
     Route: 065
     Dates: start: 20091215, end: 20100228
  5. DIOVAN HCT [Suspect]
     Active Substance: HYDROCHLOROTHIAZIDE\VALSARTAN
     Dosage: VALSARTAN 160 MG/HYDROCHLOROTHIAZIDE 12.5 MG
     Route: 065
     Dates: start: 20100228, end: 20120628
  6. HYDROCHLOROTHIAZIDE\VALSARTAN [Suspect]
     Active Substance: HYDROCHLOROTHIAZIDE\VALSARTAN
     Indication: Hypertension
     Dosage: VALSARTAN 160 MG/HYDROCHLOROTHIAZIDE 12.5 MG
     Route: 065
     Dates: start: 20150429, end: 20150728
  7. HYDROCHLOROTHIAZIDE\VALSARTAN [Suspect]
     Active Substance: HYDROCHLOROTHIAZIDE\VALSARTAN
     Indication: Hypertension
     Dosage: VALSARTAN 160 MG/HYDROCHLOROTHIAZIDE 12.5 MG
     Route: 065
     Dates: start: 20150117, end: 20150417
  8. HYDROCHLOROTHIAZIDE\VALSARTAN [Suspect]
     Active Substance: HYDROCHLOROTHIAZIDE\VALSARTAN
     Dosage: VALSARTAN 160 MG/HYDROCHLOROTHIAZIDE 12.5 MG
     Route: 065
     Dates: start: 20150706, end: 20170111
  9. HYDROCHLOROTHIAZIDE\VALSARTAN [Suspect]
     Active Substance: HYDROCHLOROTHIAZIDE\VALSARTAN
     Dosage: VALSARTAN 160 MG/HYDROCHLOROTHIAZIDE 12.5 MG
     Route: 065
     Dates: start: 20170406, end: 20180815
  10. HYDROCHLOROTHIAZIDE\VALSARTAN [Suspect]
     Active Substance: HYDROCHLOROTHIAZIDE\VALSARTAN
     Indication: Hypertension
     Dosage: VALSARTAN 160 MG/HYDROCHLOROTHIAZIDE 12.5 MG
     Route: 065
     Dates: start: 20170109, end: 20170409
  11. ATENOLOL [Concomitant]
     Active Substance: ATENOLOL
     Indication: Polyuria
     Dosage: 50 MILLIGRAM DAILY; ONGOING
     Dates: start: 20091215
  12. LIPITOR [Concomitant]
     Active Substance: ATORVASTATIN CALCIUM
     Indication: Hyperlipidaemia
  13. ASPIRIN [Concomitant]
     Active Substance: ASPIRIN
     Indication: Inflammation
     Dosage: 81 MILLIGRAM DAILY; ONGOING
  14. VITAMIN E [Concomitant]
     Active Substance: .ALPHA.-TOCOPHEROL
     Indication: Inflammation
     Dosage: 400 IU (INTERNATIONAL UNIT) DAILY; ONGOING
  15. MELATONIN [Concomitant]
     Active Substance: MELATONIN
     Indication: Sleep apnoea syndrome
     Dosage: 3 MILLIGRAM DAILY; AT NIGHT

REACTIONS (1)
  - Adenocarcinoma of colon [Not Recovered/Not Resolved]
